FAERS Safety Report 9047361 (Version 1)
Quarter: 2013Q1

REPORT INFORMATION
  Report Type: Spontaneous
  Country: CA (occurrence: CA)
  Receive Date: 20130201
  Receipt Date: 20130201
  Transmission Date: 20140127
  Serious: Yes (Other)
  Sender: FDA-Public Use
  Company Number: CA-BAYER-2013-009635

PATIENT
  Age: 31 Year
  Sex: Female

DRUGS (1)
  1. MIRENA [Suspect]
     Indication: CONTRACEPTION
     Dosage: 20 MCG/24HR, CONT
     Route: 015
     Dates: start: 2007, end: 201301

REACTIONS (14)
  - Pelvic infection [Recovered/Resolved]
  - Nausea [None]
  - Breast enlargement [None]
  - Breast tenderness [None]
  - Cervical discharge [None]
  - Weight increased [None]
  - Depression suicidal [Recovered/Resolved]
  - Post procedural haemorrhage [Recovered/Resolved]
  - Vaginal haemorrhage [None]
  - Vaginal haemorrhage [Not Recovered/Not Resolved]
  - Abdominal pain lower [Not Recovered/Not Resolved]
  - Fatigue [Not Recovered/Not Resolved]
  - Pain [Not Recovered/Not Resolved]
  - Device misuse [None]
